FAERS Safety Report 11321814 (Version 1)
Quarter: 2015Q3

REPORT INFORMATION
  Report Type: Spontaneous
  Country: GB (occurrence: GB)
  Receive Date: 20150729
  Receipt Date: 20150729
  Transmission Date: 20151125
  Serious: Yes (Other)
  Sender: FDA-Public Use
  Company Number: GB-ALLERGAN-1509258US

PATIENT
  Age: 61 Year
  Sex: Male

DRUGS (1)
  1. OZURDEX [Suspect]
     Active Substance: DEXAMETHASONE
     Indication: RETINAL VEIN OCCLUSION
     Dosage: 0.7 MG, SINGLE
     Route: 031
     Dates: start: 20140131, end: 20140131

REACTIONS (4)
  - Eye swelling [Unknown]
  - Eye pain [Unknown]
  - Visual impairment [Recovering/Resolving]
  - Endophthalmitis [Unknown]

NARRATIVE: CASE EVENT DATE: 20140203
